FAERS Safety Report 6876513-X (Version None)
Quarter: 2010Q3

REPORT INFORMATION
  Report Type: 
  Country: None (occurrence: None)
  Receive Date: 20100727
  Receipt Date: 20100720
  Transmission Date: 20110219
  Serious: Yes (Death, Hospitalization)
  Sender: FDA-Public Use
  Company Number: ES-CELGENEUS-144-50794-10060237

PATIENT
  Sex: Female
  Weight: 60 kg

DRUGS (3)
  1. VIDAZA [Suspect]
     Route: 050
     Dates: start: 20081031, end: 20091103
  2. BISOPROLOL [Concomitant]
     Route: 065
  3. VALSARTAN [Concomitant]
     Route: 065

REACTIONS (3)
  - ACUTE MYELOID LEUKAEMIA [None]
  - FEBRILE NEUTROPENIA [None]
  - PNEUMONIA [None]
